FAERS Safety Report 22247933 (Version 2)
Quarter: 2023Q2

REPORT INFORMATION
  Report Type: Spontaneous
  Country: IN (occurrence: IN)
  Receive Date: 20230425
  Receipt Date: 20230502
  Transmission Date: 20230722
  Serious: Yes (Hospitalization, Other)
  Sender: FDA-Public Use
  Company Number: None

PATIENT
  Age: 45 Year
  Sex: Male

DRUGS (6)
  1. MYCOPHENOLATE MOFETIL [Suspect]
     Active Substance: MYCOPHENOLATE MOFETIL
     Indication: Immunosuppressant drug therapy
     Dosage: UNK
     Route: 065
  2. MYCOPHENOLATE MOFETIL [Suspect]
     Active Substance: MYCOPHENOLATE MOFETIL
     Dosage: UNK, LOW DOSE
     Route: 065
  3. TACROLIMUS [Suspect]
     Active Substance: TACROLIMUS
     Indication: Immunosuppressant drug therapy
     Dosage: UNK
     Route: 065
  4. TACROLIMUS [Suspect]
     Active Substance: TACROLIMUS
     Dosage: UNK, LOW DOSE
     Route: 065
  5. DEXAMETHASONE [Suspect]
     Active Substance: DEXAMETHASONE
     Indication: COVID-19
     Dosage: UNK
     Route: 042
  6. DEXAMETHASONE [Suspect]
     Active Substance: DEXAMETHASONE
     Indication: Immunosuppressant drug therapy

REACTIONS (9)
  - Thrombocytopenia [Not Recovered/Not Resolved]
  - Histoplasmosis [Not Recovered/Not Resolved]
  - Hypovolaemic shock [Recovering/Resolving]
  - Leukocytosis [Unknown]
  - Gastrointestinal fungal infection [Recovering/Resolving]
  - Renal impairment [Unknown]
  - Transplant dysfunction [Unknown]
  - Transplant rejection [Unknown]
  - COVID-19 [Unknown]

NARRATIVE: CASE EVENT DATE: 20220201
